FAERS Safety Report 10404606 (Version 1)
Quarter: 2014Q2

REPORT INFORMATION
  Report Type: Spontaneous
  Country: US (occurrence: None)
  Receive Date: 20140530
  Receipt Date: 20140530
  Transmission Date: 20141212
  Serious: Yes (Other)
  Sender: FDA-Public Use
  Company Number: PHEH2014US004962

PATIENT
  Age: 75 Year
  Sex: Male

DRUGS (5)
  1. AFINITOR (RAD) UNKNOWN [Suspect]
     Indication: RENAL CELL CARCINOMA
     Route: 048
  2. INLYTA [Suspect]
     Indication: RENAL CELL CARCINOMA
  3. COUMADIN [Suspect]
  4. XANAX (ALPRAZOLAM) [Concomitant]
  5. CITALOPRAM [Concomitant]

REACTIONS (4)
  - Pneumonia [None]
  - Epistaxis [None]
  - Fatigue [None]
  - Dyspnoea [None]
